FAERS Safety Report 23140695 (Version 5)
Quarter: 2024Q3

REPORT INFORMATION
  Report Type: Report from Study
  Country: US (occurrence: US)
  Receive Date: 20231103
  Receipt Date: 20240730
  Transmission Date: 20241017
  Serious: Yes (Other)
  Sender: ABBVIE
  Company Number: US-ABBVIE-5476990

PATIENT
  Age: 56 Year
  Sex: Male

DRUGS (2)
  1. RINVOQ [Suspect]
     Active Substance: UPADACITINIB
     Indication: Colitis ulcerative
     Route: 048
     Dates: start: 202309
  2. RINVOQ [Suspect]
     Active Substance: UPADACITINIB
     Indication: Colitis ulcerative
     Dosage: LAST ADMIN DATE- SEP 2023
     Route: 048
     Dates: start: 20230914

REACTIONS (3)
  - Colon cancer [Unknown]
  - Colon cancer [Recovered/Resolved]
  - Rectal cancer [Unknown]

NARRATIVE: CASE EVENT DATE: 20230926
